FAERS Safety Report 6922140-5 (Version None)
Quarter: 2010Q3

REPORT INFORMATION
  Report Type: 
  Country: None (occurrence: None)
  Receive Date: 20100812
  Receipt Date: 20100804
  Transmission Date: 20110219
  Serious: Yes (Congenital Anomaly)
  Sender: FDA-Public Use
  Company Number: US-AMGEN-QUU425604

PATIENT
  Sex: Male

DRUGS (4)
  1. ENBREL [Suspect]
     Indication: PSORIASIS
     Route: 064
     Dates: start: 20030801, end: 20090101
  2. ENBREL [Suspect]
     Indication: PSORIATIC ARTHROPATHY
  3. DOVONEX [Concomitant]
  4. TOPICORTE [Concomitant]

REACTIONS (1)
  - SYNDACTYLY [None]
